FAERS Safety Report 9350307 (Version 1)
Quarter: 2013Q2

REPORT INFORMATION
  Report Type: Spontaneous
  Country: US (occurrence: US)
  Receive Date: 20130617
  Receipt Date: 20130617
  Transmission Date: 20140414
  Serious: Yes (Hospitalization, Other)
  Sender: FDA-Public Use
  Company Number: US-ROCHE-1236362

PATIENT
  Age: 80 Year
  Sex: Female
  Weight: 46.31 kg

DRUGS (8)
  1. BONIVA [Suspect]
     Indication: PRODUCT USED FOR UNKNOWN INDICATION
     Route: 065
  2. LYRICA [Suspect]
     Indication: ARTHRITIS
     Route: 048
     Dates: start: 200812
  3. LYRICA [Suspect]
     Indication: SPINAL COLUMN STENOSIS
     Route: 048
     Dates: start: 2010
  4. PROTONIX (OMEPRAZOLE) [Concomitant]
     Route: 065
  5. ENALAPRIL [Concomitant]
     Indication: HYPERTENSION
     Route: 048
     Dates: start: 1985
  6. AMLODIPINE [Concomitant]
     Indication: HYPERTENSION
     Route: 048
  7. PROLIA [Concomitant]
     Indication: OSTEOPOROSIS
     Route: 030
  8. AGGRENOX [Concomitant]

REACTIONS (11)
  - Cardiac failure congestive [Unknown]
  - Loss of consciousness [Unknown]
  - Rib fracture [Recovered/Resolved]
  - Traumatic lung injury [Recovered/Resolved]
  - Pneumonia [Recovered/Resolved]
  - Asthma [Unknown]
  - Dyspnoea [Unknown]
  - Eye disorder [Unknown]
  - Dry mouth [Unknown]
  - Ocular hyperaemia [Recovering/Resolving]
  - Bronchitis [Unknown]
